FAERS Safety Report 7126593-1 (Version None)
Quarter: 2010Q4

REPORT INFORMATION
  Report Type: 
  Country: None (occurrence: None)
  Receive Date: 20101129
  Receipt Date: 20101122
  Transmission Date: 20110411
  Serious: Yes (Other)
  Sender: FDA-Public Use
  Company Number: US-US-EMD SERONO, INC.-230893J09USA

PATIENT
  Sex: Female
  Weight: 59 kg

DRUGS (6)
  1. REBIF [Suspect]
     Indication: MULTIPLE SCLEROSIS
     Route: 058
     Dates: start: 20090825, end: 20090801
  2. REBIF [Suspect]
     Route: 058
     Dates: start: 20090801, end: 20091001
  3. MULTIPLE MEDICATIONS [UNSPECIFIED] [Suspect]
  4. EFFEXOR [Concomitant]
     Indication: HOT FLUSH
     Route: 065
     Dates: start: 19990101
  5. NAPROXEN [Concomitant]
     Indication: PREMEDICATION
     Route: 065
     Dates: start: 20090101
  6. WELLBUTRIN [Concomitant]
     Indication: ANXIETY
     Route: 065

REACTIONS (4)
  - BLOOD PRESSURE INCREASED [None]
  - DYSPNOEA [None]
  - FATIGUE [None]
  - MALIGNANT MELANOMA [None]
